FAERS Safety Report 4680937-9 (Version None)
Quarter: 2005Q2

REPORT INFORMATION
  Report Type: 
  Country: None (occurrence: None)
  Receive Date: 20050603
  Receipt Date: 20050527
  Transmission Date: 20051028
  Serious: Yes (Other)
  Sender: FDA-Public Use
  Company Number: PHEH2005US06001

PATIENT
  Age: 45 Year
  Sex: Female

DRUGS (2)
  1. DIOVAN [Suspect]
     Indication: HYPERTENSION
     Dosage: 80 MG, QD
     Route: 048
     Dates: start: 20050518
  2. COREG [Concomitant]
     Indication: HYPERTENSION
     Dosage: 25 MG, BID

REACTIONS (1)
  - CARDIAC FLUTTER [None]
